FAERS Safety Report 13789402 (Version 1)
Quarter: 2017Q3

REPORT INFORMATION
  Report Type: Spontaneous
  Country: DE (occurrence: DE)
  Receive Date: 20170725
  Receipt Date: 20170725
  Transmission Date: 20171127
  Serious: Yes (Other)
  Sender: FDA-Public Use
  Company Number: DE-ASTRAZENECA-2017SE75038

PATIENT
  Sex: Female

DRUGS (2)
  1. SYMBICORT [Suspect]
     Active Substance: BUDESONIDE\FORMOTEROL FUMARATE DIHYDRATE
     Dosage: 160/4.5 UG, SOMETIMES WHEN IT WAS WORSE A SECOND PUFF IN THE EVENING
     Route: 055
  2. SYMBICORT [Suspect]
     Active Substance: BUDESONIDE\FORMOTEROL FUMARATE DIHYDRATE
     Dosage: 160/4.5 UG, ONE PUFF EVERY MORNING
     Route: 055

REACTIONS (5)
  - Condition aggravated [Unknown]
  - Bronchial obstruction [Unknown]
  - Pulmonary oedema [Unknown]
  - Gait disturbance [Unknown]
  - Drug ineffective [Unknown]
